FAERS Safety Report 8610035 (Version 3)
Quarter: 2013Q2

REPORT INFORMATION
  Report Type: Report from Study
  Country: KR (occurrence: KR)
  Receive Date: 20120612
  Receipt Date: 20130609
  Transmission Date: 20140414
  Serious: Yes (Hospitalization)
  Sender: FDA-Public Use
  Company Number: KR-SANOFI-AVENTIS-2012SA039623

PATIENT
  Age: 51 Year
  Sex: Female

DRUGS (4)
  1. LANTUS [Suspect]
     Indication: DIABETES MELLITUS
     Dosage: DOSE:32 UNIT(S)
     Route: 058
  2. APIDRA [Suspect]
     Indication: DIABETES MELLITUS
     Dosage: DOSE:15 UNIT(S)
     Route: 058
  3. APIDRA [Suspect]
     Indication: DIABETES MELLITUS
     Dosage: DOSE: 16-20-20
     Route: 058
  4. ANTIHYPERTENSIVES [Concomitant]
     Indication: HYPERTENSION
     Route: 048

REACTIONS (4)
  - Dyspnoea [Recovering/Resolving]
  - Cold sweat [Not Recovered/Not Resolved]
  - Dizziness [Recovered/Resolved]
  - Oedema [Recovering/Resolving]
